FAERS Safety Report 13967201 (Version 1)
Quarter: 2017Q3

REPORT INFORMATION
  Report Type: Spontaneous
  Country: US (occurrence: US)
  Receive Date: 20170914
  Receipt Date: 20170914
  Transmission Date: 20171128
  Serious: No
  Sender: FDA-Public Use
  Company Number: US-AUROBINDO-AUR-APU-2017-29682

PATIENT
  Age: 65 Year
  Sex: Female

DRUGS (1)
  1. CLARITHROMYCIN TABLETS USP 250 MG [Suspect]
     Active Substance: CLARITHROMYCIN
     Indication: PRODUCT USED FOR UNKNOWN INDICATION
     Dosage: 250 MG, TWO TIMES A DAY ONE TABLET EVERY 12HOURS (LWO TABLETS TWICE A DAY)
     Route: 065

REACTIONS (3)
  - Dysphonia [Not Recovered/Not Resolved]
  - Dyspepsia [Not Recovered/Not Resolved]
  - Gastrooesophageal reflux disease [Not Recovered/Not Resolved]
